FAERS Safety Report 11326905 (Version 1)
Quarter: 2015Q3

REPORT INFORMATION
  Report Type: Spontaneous
  Country: US (occurrence: None)
  Receive Date: 20150730
  Receipt Date: 20150730
  Transmission Date: 20151125
  Serious: Yes (Death)
  Sender: FDA-Public Use
  Company Number: None

PATIENT
  Age: 26 Year
  Sex: Female

DRUGS (22)
  1. ACETAMINOPHEN. [Concomitant]
     Active Substance: ACETAMINOPHEN
  2. ATORVASTATIN [Concomitant]
     Active Substance: ATORVASTATIN
  3. CHLORHEXADINE [Concomitant]
     Active Substance: CHLORHEXIDINE
  4. METOCLOPRAMIDE. [Concomitant]
     Active Substance: METOCLOPRAMIDE
  5. MIDAZOLAM [Concomitant]
     Active Substance: MIDAZOLAM\MIDAZOLAM HYDROCHLORIDE
  6. PHENOBARBITAL. [Concomitant]
     Active Substance: PHENOBARBITAL
  7. VALPROIC ACID. [Concomitant]
     Active Substance: VALPROIC ACID
  8. PROPOFOL. [Suspect]
     Active Substance: PROPOFOL
     Indication: ATRIAL FIBRILLATION
     Dosage: CONTINUOUS
     Route: 042
     Dates: start: 20150218, end: 20150221
  9. PHENYTOIN. [Concomitant]
     Active Substance: PHENYTOIN
  10. PIPERACILLIN/TAZOBACTAM [Concomitant]
     Active Substance: PIPERACILLIN SODIUM\TAZOBACTAM SODIUM
  11. VANCOMYCIN [Concomitant]
     Active Substance: VANCOMYCIN
  12. CISATRACURIUM. [Concomitant]
     Active Substance: CISATRACURIUM
  13. LEVETIRACETAM. [Concomitant]
     Active Substance: LEVETIRACETAM
  14. CALCIUM GLUCONATE. [Concomitant]
     Active Substance: CALCIUM GLUCONATE
  15. RANITIDINE [Concomitant]
     Active Substance: RANITIDINE\RANITIDINE HYDROCHLORIDE
  16. DOCUSATE [Concomitant]
     Active Substance: DOCUSATE
  17. FENTANYL. [Concomitant]
     Active Substance: FENTANYL
  18. HEPARIN [Concomitant]
     Active Substance: HEPARIN SODIUM
  19. POTASSIUM CHLORIDE. [Concomitant]
     Active Substance: POTASSIUM CHLORIDE
  20. POTASSIUM PHOSPHATE [Concomitant]
     Active Substance: POTASSIUM PHOSPHATE
  21. BISACODYL. [Concomitant]
     Active Substance: BISACODYL
  22. HYDROCORTISONE. [Concomitant]
     Active Substance: HYDROCORTISONE

REACTIONS (6)
  - Blood creatine phosphokinase increased [None]
  - Hyperchloraemia [None]
  - Propofol infusion syndrome [None]
  - Hypernatraemia [None]
  - Hypophosphataemia [None]
  - Pulmonary embolism [None]

NARRATIVE: CASE EVENT DATE: 20150221
